FAERS Safety Report 15704762 (Version 2)
Quarter: 2019Q1

REPORT INFORMATION
  Report Type: Report from Study
  Country: CN (occurrence: CN)
  Receive Date: 20181210
  Receipt Date: 20190104
  Transmission Date: 20190417
  Serious: Yes (Other)
  Sender: FDA-Public Use
  Company Number: CN-PFIZER INC-2018507841

PATIENT
  Age: 81 Year
  Sex: Female

DRUGS (4)
  1. HOMOHARRINGTONINE [Suspect]
     Active Substance: OMACETAXINE MEPESUCCINATE
     Indication: ACUTE MYELOID LEUKAEMIA
     Dosage: UNK, CYCLIC (ONE-THIRD STANDARD-DOSE)
  2. DECITABINE. [Suspect]
     Active Substance: DECITABINE
     Indication: ACUTE MYELOID LEUKAEMIA
     Dosage: 20 MG/M2, DAILY (1-HOUR) (FOR 5 CONSECUTIVE DAYS EVERY 4 WEEKS, ON DAYS 1-5)
     Route: 042
  3. CYTARABINE. [Suspect]
     Active Substance: CYTARABINE
     Indication: ACUTE MYELOID LEUKAEMIA
     Dosage: 20 MG, DAILY (LOW DOSE) (SEVEN CONSECUTIVE DAYS,ON DAYS 3-9) X 4
     Route: 058
  4. ACLARUBICIN [Suspect]
     Active Substance: ACLARUBICIN
     Indication: ACUTE MYELOID LEUKAEMIA
     Dosage: UNK, CYCLIC (ONE-THIRD STANDARD-DOSE)

REACTIONS (3)
  - Cellulitis [Recovering/Resolving]
  - Bone marrow failure [Unknown]
  - Lung infection [Recovering/Resolving]
